FAERS Safety Report 5494694-X (Version None)
Quarter: 2007Q4

REPORT INFORMATION
  Report Type: 
  Country: None (occurrence: None)
  Receive Date: 20071023
  Receipt Date: 20071023
  Transmission Date: 20080405
  Serious: No
  Sender: FDA-Public Use
  Company Number: None

PATIENT
  Age: 80 Year
  Sex: Male
  Weight: 79.3795 kg

DRUGS (1)
  1. LOTREL [Suspect]
     Indication: HYPERTENSION
     Dosage: 1 CAPSULE  PER DAY  PO
     Route: 048
     Dates: start: 20070601, end: 20071021

REACTIONS (2)
  - OEDEMA PERIPHERAL [None]
  - SENSATION OF HEAVINESS [None]
